FAERS Safety Report 7891568-1 (Version None)
Quarter: 2011Q4

REPORT INFORMATION
  Report Type: 
  Country: None (occurrence: None)
  Receive Date: 20111103
  Receipt Date: 20110805
  Transmission Date: 20120403
  Serious: No
  Sender: FDA-Public Use
  Company Number: US-AMGEN-USASP2011039965

PATIENT
  Sex: Female

DRUGS (2)
  1. ENBREL [Suspect]
     Indication: RHEUMATOID ARTHRITIS
     Dates: start: 20110407
  2. TREXALL [Concomitant]
     Dosage: 4 MG, QWK
     Dates: start: 20090101

REACTIONS (3)
  - SKIN EXFOLIATION [None]
  - RASH MACULAR [None]
  - RASH PRURITIC [None]
